FAERS Safety Report 5716552-5 (Version None)
Quarter: 2008Q2

REPORT INFORMATION
  Report Type: 
  Country: None (occurrence: None)
  Receive Date: 20080424
  Receipt Date: 20080128
  Transmission Date: 20081010
  Serious: Yes (Hospitalization)
  Sender: FDA-Public Use
  Company Number: NL-PURDUE-GBR_2008_0003924

PATIENT
  Age: 71 Year
  Sex: Male

DRUGS (5)
  1. OXYCONTIN [Suspect]
     Indication: PAIN IN EXTREMITY
     Dosage: 5 MG, TID
     Route: 065
     Dates: start: 20071109, end: 20071128
  2. BETASERC [Concomitant]
     Indication: VERTIGO
     Dosage: 16 MG, UNK
     Route: 048
  3. CINNARIZINE [Concomitant]
     Indication: VERTIGO
     Dosage: 20 MG, UNK
     Route: 048
  4. ACTONEL [Concomitant]
     Indication: OSTEOPOROSIS
     Dosage: 70 UNK, UNK
     Route: 048
  5. SELOKEEN ZOC [Concomitant]
     Indication: HYPERTENSION
     Route: 048

REACTIONS (1)
  - CEREBROVASCULAR ACCIDENT [None]
